FAERS Safety Report 20976595 (Version 4)
Quarter: 2022Q3

REPORT INFORMATION
  Report Type: Spontaneous
  Country: US (occurrence: US)
  Receive Date: 20220617
  Receipt Date: 20220928
  Transmission Date: 20221026
  Serious: No
  Sender: FDA-Public Use
  Company Number: US-SUNOVION-2022SUN001810

PATIENT
  Sex: Female

DRUGS (8)
  1. LATUDA [Suspect]
     Active Substance: LURASIDONE HYDROCHLORIDE
     Indication: Bipolar II disorder
     Dosage: 60 MG
     Route: 048
  2. LATUDA [Suspect]
     Active Substance: LURASIDONE HYDROCHLORIDE
     Indication: Bipolar disorder
     Dosage: 70 MG (60 MG TABLET AND HALF OF 20 MG TABLET)
     Route: 048
  3. LATUDA [Suspect]
     Active Substance: LURASIDONE HYDROCHLORIDE
     Dosage: 80 MG (60MG AND 20MG TAB)
     Route: 048
  4. LATUDA [Suspect]
     Active Substance: LURASIDONE HYDROCHLORIDE
     Dosage: 20 MG
     Route: 048
  5. CAPLYTA [Suspect]
     Active Substance: LUMATEPERONE
     Dosage: UNK
  6. CAPLYTA [Suspect]
     Active Substance: LUMATEPERONE
     Dosage: UNK (DOSE INCREASE)
  7. KLONOPIN [Concomitant]
     Active Substance: CLONAZEPAM
     Dosage: 4 MG
     Route: 065
  8. KLONOPIN [Concomitant]
     Active Substance: CLONAZEPAM
     Dosage: 2.5 MG
     Route: 065

REACTIONS (18)
  - Pain in extremity [Recovered/Resolved]
  - Palpitations [Recovered/Resolved]
  - Decreased interest [Not Recovered/Not Resolved]
  - Discomfort [Not Recovered/Not Resolved]
  - Feeling jittery [Not Recovered/Not Resolved]
  - Middle insomnia [Not Recovered/Not Resolved]
  - Drug ineffective [Unknown]
  - Drug hypersensitivity [Unknown]
  - Psychological trauma [Unknown]
  - Respiration abnormal [Unknown]
  - Throat tightness [Unknown]
  - Chest pain [Unknown]
  - Memory impairment [Unknown]
  - Dyspnoea [Unknown]
  - Insomnia [Recovered/Resolved]
  - Anxiety [Not Recovered/Not Resolved]
  - Agitation [Not Recovered/Not Resolved]
  - Wrong technique in product usage process [Unknown]

NARRATIVE: CASE EVENT DATE: 20220611
